FAERS Safety Report 20815276 (Version 1)
Quarter: 2022Q2

REPORT INFORMATION
  Report Type: Spontaneous
  Country: US (occurrence: US)
  Receive Date: 20220511
  Receipt Date: 20220511
  Transmission Date: 20220721
  Serious: No
  Sender: FDA-Public Use
  Company Number: US-PFIZER INC-202200123876

PATIENT
  Age: 75 Year
  Sex: Female
  Weight: 54.422 kg

DRUGS (1)
  1. LATANOPROST [Suspect]
     Active Substance: LATANOPROST
     Indication: Open angle glaucoma
     Dosage: AT NIGHT IN EACH EYE
     Dates: start: 202101

REACTIONS (5)
  - Eyelid margin crusting [Recovered/Resolved]
  - Erythema of eyelid [Recovered/Resolved]
  - Swelling of eyelid [Recovered/Resolved]
  - Eyelids pruritus [Recovered/Resolved]
  - Blepharitis [Recovered/Resolved]
